FAERS Safety Report 5570369-3 (Version None)
Quarter: 2007Q4

REPORT INFORMATION
  Report Type: 
  Country: None (occurrence: None)
  Receive Date: 20071219
  Receipt Date: 20071219
  Transmission Date: 20080405
  Serious: No
  Sender: FDA-Public Use
  Company Number: None

PATIENT
  Age: 61 Year
  Sex: Male
  Weight: 78.4723 kg

DRUGS (4)
  1. LITHIUM CITRATE [Suspect]
     Dosage: 600 BID PO
     Route: 048
  2. GLIPIZIDE [Concomitant]
  3. CLOZAPINE [Concomitant]
  4. LORAZEPAM [Concomitant]

REACTIONS (3)
  - ILL-DEFINED DISORDER [None]
  - SOMNOLENCE [None]
  - SPEECH DISORDER [None]
